FAERS Safety Report 4887343-2 (Version None)
Quarter: 2005Q4

REPORT INFORMATION
  Report Type: 
  Country: None (occurrence: None)
  Receive Date: 20051221
  Receipt Date: 20050617
  Transmission Date: 20060501
  Serious: No
  Sender: FDA-Public Use
  Company Number: US-YAMANOUCHI-YPA20050317

PATIENT
  Age: 86 Year
  Sex: Female
  Weight: 63.5036 kg

DRUGS (10)
  1. VESICARE [Suspect]
     Indication: HYPERTONIC BLADDER
     Dosage: 5 MG QD PO
     Route: 048
     Dates: start: 20050613
  2. CARDIZEM [Concomitant]
  3. LISINOPRIL [Concomitant]
  4. CELEBREX [Concomitant]
  5. TYLENOL ARTHRITIS [Concomitant]
  6. PAXIL [Concomitant]
  7. FOSAMAX [Concomitant]
  8. PRILOSEC [Concomitant]
  9. FLONASE [Concomitant]
  10. LODOSE ASPIRIN [Concomitant]

REACTIONS (2)
  - DRUG INEFFECTIVE [None]
  - FATIGUE [None]
